FAERS Safety Report 16959448 (Version 2)
Quarter: 2020Q1

REPORT INFORMATION
  Report Type: Spontaneous
  Country: US (occurrence: US)
  Receive Date: 20191025
  Receipt Date: 20200309
  Transmission Date: 20200409
  Serious: Yes (Hospitalization, Other)
  Sender: FDA-Public Use
  Company Number: US-EMCURE PHARMACEUTICALS LTD-2019-EPL-0943

PATIENT
  Age: 31 Year
  Sex: Female

DRUGS (2)
  1. NIFEDIPINE. [Suspect]
     Active Substance: NIFEDIPINE
     Dosage: 10 MILLIGRAM, SHORT-ACTING
     Route: 048
  2. NIFEDIPINE. [Suspect]
     Active Substance: NIFEDIPINE
     Indication: TOCOLYSIS
     Dosage: 20 MILLIGRAM, SHORT-ACTING
     Route: 048

REACTIONS (4)
  - Electrocardiogram ST segment depression [Recovered/Resolved]
  - Shock [Recovered/Resolved]
  - Off label use [Unknown]
  - Exposure during pregnancy [Recovered/Resolved]
